FAERS Safety Report 4310772-2 (Version None)
Quarter: 2004Q1

REPORT INFORMATION
  Report Type: 
  Country: None (occurrence: None)
  Receive Date: 20040302
  Receipt Date: 20040215
  Transmission Date: 20041129
  Serious: Yes (Hospitalization)
  Sender: FDA-Public Use
  Company Number: 03P-167-0244776-00

PATIENT
  Age: 52 Year
  Sex: Female
  Weight: 51 kg

DRUGS (14)
  1. HUMIRA [Suspect]
     Indication: RHEUMATOID ARTHRITIS
     Dosage: 40 MG, 1 IN 2 WK, SUBCUTANEOUS
     Route: 058
     Dates: start: 20021101, end: 20030201
  2. REMICADE [Concomitant]
  3. METHOTREXATE SODIUM [Concomitant]
  4. ETODOLAC [Concomitant]
  5. LANSOPRAZOLE [Concomitant]
  6. DOSULEPIN [Concomitant]
  7. FOLIC ACID [Concomitant]
  8. PREMARIN PLUS [Concomitant]
  9. BENDROFLUMETHIAZIDE [Concomitant]
  10. ALENDRONATE SODIUM [Concomitant]
  11. PREDNISOLONE [Concomitant]
  12. CALCIUM CARBONATE [Concomitant]
  13. CALCITONIN-SALMON [Concomitant]
  14. DIHYDROCODEINE [Concomitant]

REACTIONS (6)
  - ABDOMINAL INFECTION [None]
  - BACTERIAL INFECTION [None]
  - PURULENT DISCHARGE [None]
  - RECTAL DISCHARGE [None]
  - SKIN ULCER [None]
  - STREPTOCOCCAL INFECTION [None]
